FAERS Safety Report 5824893-6 (Version None)
Quarter: 2008Q3

REPORT INFORMATION
  Report Type: 
  Country: None (occurrence: None)
  Receive Date: 20080728
  Receipt Date: 20080711
  Transmission Date: 20090109
  Serious: No
  Sender: FDA-Public Use
  Company Number: US-BOEHRINGER INGELHEIM GMBH, GERMANY-2008-BP-10945BP

PATIENT
  Sex: Female

DRUGS (4)
  1. MIRAPEX [Suspect]
     Indication: PARKINSON'S DISEASE
     Route: 048
     Dates: start: 20070801
  2. INSULIN [Concomitant]
  3. AMITRIPTYLINE HCL [Concomitant]
  4. CARBIDOPA AND LEVODOPA [Concomitant]

REACTIONS (2)
  - DYSGEUSIA [None]
  - THERAPEUTIC RESPONSE DECREASED [None]
